FAERS Safety Report 17862066 (Version 1)
Quarter: 2020Q2

REPORT INFORMATION
  Report Type: Spontaneous
  Country: US (occurrence: US)
  Receive Date: 20200604
  Receipt Date: 20200604
  Transmission Date: 20200714
  Serious: No
  Sender: FDA-Public Use
  Company Number: US-GUERBET-US-20190287

PATIENT
  Sex: Female

DRUGS (2)
  1. KEPPRA [Concomitant]
     Active Substance: LEVETIRACETAM
     Indication: SEIZURE
     Route: 065
  2. DOTAREM [Suspect]
     Active Substance: GADOTERATE MEGLUMINE
     Indication: MAGNETIC RESONANCE IMAGING BRAIN
     Route: 042
     Dates: start: 20191123, end: 20191123

REACTIONS (1)
  - Abdominal pain upper [Not Recovered/Not Resolved]
